FAERS Safety Report 6807782-X (Version None)
Quarter: 2010Q2

REPORT INFORMATION
  Report Type: 
  Country: None (occurrence: None)
  Receive Date: 20100629
  Receipt Date: 20081218
  Transmission Date: 20101027
  Serious: No
  Sender: FDA-Public Use
  Company Number: US-PFIZER INC-2008158791

PATIENT

DRUGS (3)
  1. TIKOSYN [Suspect]
  2. UROXATRAL [Concomitant]
  3. FLOMAX [Concomitant]

REACTIONS (1)
  - PROSTATOMEGALY [None]
